FAERS Safety Report 22168668 (Version 1)
Quarter: 2023Q2

REPORT INFORMATION
  Report Type: Report from Study
  Country: DE (occurrence: DE)
  Receive Date: 20230403
  Receipt Date: 20230403
  Transmission Date: 20230722
  Serious: Yes (Hospitalization)
  Sender: FDA-Public Use
  Company Number: DE-JNJFOC-20230134745

PATIENT
  Age: 53 Year
  Sex: Female
  Weight: 66.8 kg

DRUGS (2)
  1. TECLISTAMAB [Suspect]
     Active Substance: TECLISTAMAB
     Indication: Plasma cell myeloma
     Dosage: 207000 MICROGRAMS PER KILOGRAM; MEDICAL KIT 946506, 946507; MOST RECENT DOSE RECEIVED ON 09-JAN-2023
     Route: 058
     Dates: start: 20220111
  2. DARATUMUMAB [Suspect]
     Active Substance: DARATUMUMAB
     Indication: Plasma cell myeloma
     Dosage: MEDICAL KIT 118717; MOST RECENT DOSE RECEIVED ON 09-JAN-2023
     Route: 058
     Dates: start: 20220110

REACTIONS (1)
  - COVID-19 [Recovered/Resolved]

NARRATIVE: CASE EVENT DATE: 20230113
